FAERS Safety Report 6923823-3 (Version None)
Quarter: 2010Q3

REPORT INFORMATION
  Report Type: 
  Country: None (occurrence: None)
  Receive Date: 20100813
  Receipt Date: 20090722
  Transmission Date: 20110219
  Serious: Yes (Other)
  Sender: FDA-Public Use
  Company Number: US-BRISTOL-MYERS SQUIBB COMPANY-14712129

PATIENT

DRUGS (2)
  1. REYATAZ [Suspect]
     Dosage: BOOSTED REYATAZ
  2. RITONAVIR [Suspect]

REACTIONS (1)
  - BLOOD BILIRUBIN INCREASED [None]
